FAERS Safety Report 9400402 (Version 2)
Quarter: 2013Q3

REPORT INFORMATION
  Report Type: Spontaneous
  Country: CA (occurrence: None)
  Receive Date: 20130711
  Receipt Date: 20130719
  Transmission Date: 20140515
  Serious: Yes (Hospitalization)
  Sender: FDA-Public Use
  Company Number: 1790440

PATIENT
  Age: 65 Year
  Sex: Female
  Weight: 54 kg

DRUGS (10)
  1. HYDROMORPHONE HYDROCHLORIDE [Suspect]
     Indication: PAIN
     Route: 058
  2. HYDROMORPHONE HYDROCHLORIDE [Suspect]
     Route: 058
  3. TIVOZANIB [Suspect]
     Indication: COLON CANCER
     Route: 048
     Dates: start: 20130207
  4. OXALIPLATIN [Suspect]
     Indication: COLON CANCER
     Dosage: 1 WEEK
     Route: 042
     Dates: start: 20130207
  5. LEUCOVORIN [Suspect]
     Indication: COLON CANCER
     Dosage: 1 WEEK
     Route: 042
     Dates: start: 20130207
  6. FLUOROURACIL [Suspect]
     Indication: COLON CANCER
     Route: 040
     Dates: start: 20130207
  7. HYDROMORPHONE [Suspect]
     Indication: ABDOMINAL PAIN
     Route: 048
     Dates: start: 20130123
  8. HYDROMORPH CONTIN [Suspect]
     Indication: ABDOMINAL PAIN
     Route: 048
     Dates: start: 20130204
  9. METOCLOPRAMIDE HYDROCHLORIDE [Concomitant]
  10. ONDANSETRON [Concomitant]

REACTIONS (6)
  - Constipation [None]
  - Vomiting [None]
  - Nausea [None]
  - Abdominal pain [None]
  - Diarrhoea [None]
  - Metastases to peritoneum [None]
